FAERS Safety Report 5163653-9 (Version None)
Quarter: 2006Q4

REPORT INFORMATION
  Report Type: 
  Country: None (occurrence: None)
  Receive Date: 20061127
  Receipt Date: 20061127
  Transmission Date: 20070319
  Serious: Yes (Hospitalization)
  Sender: FDA-Public Use
  Company Number: None

PATIENT
  Sex: Male
  Weight: 98 kg

DRUGS (2)
  1. ENOXAPARIN SODIUM [Suspect]
     Indication: DEEP VEIN THROMBOSIS
     Dosage: 100MG Q1 SQ
     Route: 058
  2. ENOXAPARIN SODIUM [Suspect]
     Indication: PULMONARY EMBOLISM
     Dosage: 100MG Q1 SQ
     Route: 058

REACTIONS (3)
  - DYSPHONIA [None]
  - POST PROCEDURAL HAEMATOMA [None]
  - THROAT TIGHTNESS [None]
